FAERS Safety Report 4620619-2 (Version None)
Quarter: 2005Q1

REPORT INFORMATION
  Report Type: 
  Country: None (occurrence: None)
  Receive Date: 20050324
  Receipt Date: 20050308
  Transmission Date: 20050727
  Serious: Yes (Hospitalization)
  Sender: FDA-Public Use
  Company Number: 2004-BP-11310NB

PATIENT
  Age: 65 Year
  Sex: Female

DRUGS (7)
  1. MOBIC [Suspect]
     Indication: RHEUMATOID ARTHRITIS
     Dosage: 10 MG (10 MG), PO
     Route: 048
     Dates: start: 20040713, end: 20041102
  2. THYRADIN S (LEVOTHYROXINE SODIUM (TA) [Concomitant]
  3. RIMATIL (BUCILLAMINE ) (TA) [Concomitant]
  4. DEPAS (ETIZOLAM) (TA) [Concomitant]
  5. HALCION [Concomitant]
  6. ROCALTOROL (CALCITRIOL) (KA) [Concomitant]
  7. ROCALTOROL (CALCITRIOL) (KA) [Concomitant]

REACTIONS (1)
  - AUTOIMMUNE HEPATITIS [None]
